FAERS Safety Report 7889241-9 (Version None)
Quarter: 2011Q4

REPORT INFORMATION
  Report Type: 
  Country: None (occurrence: None)
  Receive Date: 20111103
  Receipt Date: 20111025
  Transmission Date: 20120403
  Serious: Yes (Hospitalization, Other)
  Sender: FDA-Public Use
  Company Number: US-MERCK-1104USA03488

PATIENT
  Age: 84 Year
  Sex: Female

DRUGS (2)
  1. FOSAMAX [Suspect]
     Indication: OSTEOPOROSIS
     Route: 048
     Dates: start: 20010401, end: 20050101
  2. FOSAMAX PLUS D [Suspect]
     Route: 048
     Dates: start: 20060413, end: 20080401

REACTIONS (14)
  - HAEMORRHAGIC ANAEMIA [None]
  - HYPERTENSION [None]
  - OSTEOARTHRITIS [None]
  - BACK PAIN [None]
  - SPINAL OSTEOARTHRITIS [None]
  - BLOOD TRIGLYCERIDES INCREASED [None]
  - FALL [None]
  - HYPERLIPIDAEMIA [None]
  - DRUG HYPERSENSITIVITY [None]
  - OSTEOCHONDROSIS [None]
  - FOOD ALLERGY [None]
  - SPINAL DISORDER [None]
  - FEMUR FRACTURE [None]
  - KYPHOSIS [None]
